FAERS Safety Report 9820976 (Version 1)
Quarter: 2013Q4

REPORT INFORMATION
  Report Type: Spontaneous
  Country: US (occurrence: None)
  Receive Date: 20131028
  Receipt Date: 20131028
  Transmission Date: 20140711
  Serious: Yes (Other)
  Sender: FDA-Public Use
  Company Number: 2013US001609

PATIENT
  Age: 58 Year
  Sex: Female
  Weight: 66 kg

DRUGS (8)
  1. ICLUSIG [Suspect]
     Indication: CHRONIC MYELOID LEUKAEMIA
     Route: 048
     Dates: start: 20130410
  2. SIMVASTATIN (SIMVASTATIN) [Concomitant]
  3. OMEPRAZOLE (OMEPRAZOLE) [Concomitant]
  4. LISINOPRIL (LISINOPRIL) [Concomitant]
  5. METFORMIN (METFORMIN) [Concomitant]
  6. GABAPENTIN (GABAPENTIN) [Concomitant]
  7. HYDROCODONE (HYDROCODONE) [Concomitant]
  8. LETROZOLE (LETROZOLE) [Concomitant]

REACTIONS (3)
  - Skin exfoliation [None]
  - Fatigue [None]
  - Dry skin [None]
